FAERS Safety Report 4885323-4 (Version None)
Quarter: 2006Q1

REPORT INFORMATION
  Report Type: 
  Country: None (occurrence: None)
  Receive Date: 20060119
  Receipt Date: 20060109
  Transmission Date: 20060701
  Serious: Yes (Hospitalization)
  Sender: FDA-Public Use
  Company Number: PHRM2006FR00478

PATIENT
  Age: 76 Year
  Sex: Female
  Weight: 61 kg

DRUGS (9)
  1. INNOHEP [Suspect]
     Indication: PULMONARY EMBOLISM
     Dosage: 1 DF, QD
     Route: 048
     Dates: start: 20050927, end: 20051026
  2. MOPRAL [Suspect]
     Indication: GASTRODUODENAL ULCER
     Dosage: 20 MG, QD
     Dates: start: 20050927, end: 20051026
  3. GARDENAL [Suspect]
     Dosage: 100 MG, QD
     Route: 048
     Dates: start: 20050927, end: 20051026
  4. ALKERAN [Suspect]
     Indication: MULTIPLE MYELOMA
     Route: 042
     Dates: start: 20051017, end: 20051021
  5. COZAAR [Concomitant]
     Indication: ESSENTIAL HYPERTENSION
     Dosage: 1 DF, QD
     Route: 048
     Dates: start: 20051026
  6. DEXAMETHASONE TAB [Concomitant]
     Indication: MULTIPLE MYELOMA
     Dates: start: 20051017
  7. FRAGMIN [Concomitant]
  8. LASILIX [Concomitant]
  9. ZOMETA [Suspect]
     Indication: MULTIPLE MYELOMA
     Dosage: 4 MG, QMO
     Route: 042
     Dates: start: 20051017, end: 20051021

REACTIONS (8)
  - DRUG RASH WITH EOSINOPHILIA AND SYSTEMIC SYMPTOMS [None]
  - EOSINOPHILIA [None]
  - GENERAL PHYSICAL HEALTH DETERIORATION [None]
  - HYPERSENSITIVITY [None]
  - PYREXIA [None]
  - RASH [None]
  - SKIN EXFOLIATION [None]
  - TOXIC SKIN ERUPTION [None]
